FAERS Safety Report 10077666 (Version 2)
Quarter: 2014Q2

REPORT INFORMATION
  Report Type: Spontaneous
  Country: US (occurrence: US)
  Receive Date: 20140414
  Receipt Date: 20140414
  Transmission Date: 20141212
  Serious: No
  Sender: FDA-Public Use
  Company Number: US-BANPHARM-20142173

PATIENT
  Age: 91 Year
  Sex: Male
  Weight: 80.74 kg

DRUGS (2)
  1. ALEVE LIQUID GELS 220 MG [Suspect]
     Dosage: 1 DF, QD,
     Route: 048
     Dates: start: 20140203, end: 20140206
  2. ALEVE TABLETS [Suspect]
     Dosage: 1 DF,
     Route: 048
     Dates: start: 20140207

REACTIONS (2)
  - Foreign body [Recovered/Resolved]
  - Off label use [Unknown]
